FAERS Safety Report 11979811 (Version 4)
Quarter: 2016Q1

REPORT INFORMATION
  Report Type: Spontaneous
  Country: US (occurrence: US)
  Receive Date: 20160129
  Receipt Date: 20160324
  Transmission Date: 20160526
  Serious: Yes (Other)
  Sender: FDA-Public Use
  Company Number: ADR-2014-00466

PATIENT
  Age: 42 Year
  Sex: Female

DRUGS (4)
  1. COMPOUNDED BACLOFEN [Suspect]
     Active Substance: BACLOFEN
     Dosage: 210.11MCG/DAY
     Route: 037
  2. CLONIDINE. [Suspect]
     Active Substance: CLONIDINE
     Dosage: 35.02MCG/DAY
     Route: 037
  3. BUPIVACAINE [Suspect]
     Active Substance: BUPIVACAINE
     Dosage: 7.004MG/DAY
     Route: 037
  4. MORPHINE SULFATE. [Suspect]
     Active Substance: MORPHINE SULFATE
     Dosage: 5.253MG/DAY
     Route: 037

REACTIONS (4)
  - Sensory disturbance [None]
  - Hypoaesthesia [None]
  - Infusion site mass [None]
  - Ependymoma [None]
